FAERS Safety Report 13429659 (Version 2)
Quarter: 2017Q2

REPORT INFORMATION
  Report Type: Report from Study
  Country: None (occurrence: US)
  Receive Date: 20170412
  Receipt Date: 20170508
  Transmission Date: 20170830
  Serious: Yes (Hospitalization, Other)
  Sender: FDA-Public Use
  Company Number: US-ABBVIE-17K-163-1879682-00

PATIENT
  Age: 12 Year
  Sex: Female
  Weight: 38 kg

DRUGS (5)
  1. HUMIRA [Suspect]
     Active Substance: ADALIMUMAB
     Indication: CROHN^S DISEASE
     Route: 058
     Dates: start: 201512, end: 2016
  2. HUMIRA [Suspect]
     Active Substance: ADALIMUMAB
     Indication: CROHN^S DISEASE
  3. METHOTREXATE. [Suspect]
     Active Substance: METHOTREXATE
     Indication: CROHN^S DISEASE
     Route: 065
  4. HUMIRA [Suspect]
     Active Substance: ADALIMUMAB
     Indication: CROHN^S DISEASE
     Route: 058
     Dates: start: 2016
  5. METHOTREXATE. [Suspect]
     Active Substance: METHOTREXATE
     Route: 065

REACTIONS (19)
  - Pleural effusion [Recovering/Resolving]
  - Pneumonia bacterial [Recovered/Resolved]
  - Hypoxia [Recovered/Resolved]
  - Upper respiratory tract infection [Recovered/Resolved]
  - Tonsillar hypertrophy [Unknown]
  - Pharyngitis streptococcal [Unknown]
  - Respiratory distress [Recovered/Resolved]
  - Pulmonary embolism [Recovering/Resolving]
  - Drug intolerance [Unknown]
  - Crohn^s disease [Unknown]
  - Pulmonary infarction [Unknown]
  - Headache [Unknown]
  - Dehydration [Unknown]
  - Fatigue [Unknown]
  - Musculoskeletal pain [Recovering/Resolving]
  - Pneumonia [Unknown]
  - Neck pain [Recovering/Resolving]
  - Abdominal pain upper [Unknown]
  - Pharyngitis [Unknown]

NARRATIVE: CASE EVENT DATE: 201611
